FAERS Safety Report 4624896-3 (Version None)
Quarter: 2005Q2

REPORT INFORMATION
  Report Type: 
  Country: None (occurrence: None)
  Receive Date: 20050325
  Receipt Date: 20050110
  Transmission Date: 20051028
  Serious: No
  Sender: FDA-Public Use
  Company Number: USA050187898

PATIENT
  Age: 58 Year
  Sex: Female

DRUGS (11)
  1. FORTEO [Suspect]
     Dates: start: 20041022
  2. SYNTHROID [Concomitant]
  3. BENAZEPRIL HYDROCHLORIDE [Concomitant]
  4. PROTONIX [Concomitant]
  5. SINGULAIR (MONTELUKAST) [Concomitant]
  6. ALLEGRA [Concomitant]
  7. FLOVENT [Concomitant]
  8. PROVENTIL (SALBUTAMOL SULFATE) [Concomitant]
  9. MYLANTA (CALCIUM CARBONATE) [Concomitant]
  10. VITAMINS [Concomitant]
  11. CALCIUM GLUCONATE [Concomitant]

REACTIONS (3)
  - INJECTION SITE HAEMORRHAGE [None]
  - PAIN IN EXTREMITY [None]
  - RASH PAPULAR [None]
